FAERS Safety Report 7994247-5 (Version None)
Quarter: 2011Q4

REPORT INFORMATION
  Report Type: 
  Country: None (occurrence: None)
  Receive Date: 20111220
  Receipt Date: 20111213
  Transmission Date: 20120403
  Serious: Yes (Other)
  Sender: FDA-Public Use
  Company Number: GB-UCBSA-041469

PATIENT
  Age: 28 Year
  Sex: Female
  Weight: 54.2 kg

DRUGS (1)
  1. LEVETIRACETAM [Suspect]
     Dosage: ONCE
     Route: 048
     Dates: start: 20110906, end: 20110906

REACTIONS (2)
  - ABORTION INDUCED [None]
  - PREGNANCY [None]
